FAERS Safety Report 9142683 (Version 8)
Quarter: 2014Q3

REPORT INFORMATION
  Report Type: Report from Study
  Country: CA (occurrence: CA)
  Receive Date: 20130306
  Receipt Date: 20140804
  Transmission Date: 20150326
  Serious: Yes (Death, Hospitalization)
  Sender: FDA-Public Use
  Company Number: CA-JNJFOC-20130217292

PATIENT
  Age: 50 Year
  Sex: Male
  Weight: 104.33 kg

DRUGS (1)
  1. STELARA [Suspect]
     Active Substance: USTEKINUMAB
     Indication: PSORIASIS
     Route: 058
     Dates: start: 200708

REACTIONS (6)
  - Colitis ischaemic [Recovered/Resolved with Sequelae]
  - Rectal adenocarcinoma [Recovered/Resolved]
  - Large intestine perforation [Fatal]
  - Multi-organ failure [Fatal]
  - Peritonitis [Fatal]
  - Acute respiratory distress syndrome [Fatal]

NARRATIVE: CASE EVENT DATE: 20120824
